FAERS Safety Report 23203472 (Version 1)
Quarter: 2023Q4

REPORT INFORMATION
  Report Type: Spontaneous
  Country: US (occurrence: US)
  Receive Date: 20231120
  Receipt Date: 20231120
  Transmission Date: 20240110
  Serious: No
  Sender: FDA-Public Use
  Company Number: US-drreddys-SPO/USA/23/0180532

PATIENT
  Age: 18 Year
  Sex: Female

DRUGS (1)
  1. ACCUTANE [Suspect]
     Active Substance: ISOTRETINOIN
     Indication: Acne
     Dosage: RMA ISSUE DATE: 03 APRIL 2023 09:44:35 AM, 01 MAY 2023 10:43:39 AM, 05 JUNE 2023 09:36:36 AM, 05 JUL

REACTIONS (1)
  - Adverse drug reaction [Unknown]
